FAERS Safety Report 8394841 (Version 3)
Quarter: 2012Q4

REPORT INFORMATION
  Report Type: 
  Country: BR (occurrence: BR)
  Receive Date: 20120208
  Receipt Date: 20121205
  Transmission Date: 20130627
  Serious: Yes (Other)
  Sender: FDA-Public Use
  Company Number: BR-AMGEN-BRASP2012007434

PATIENT
  Age: 70 Year
  Sex: Female
  Weight: 57 kg

DRUGS (13)
  1. ENBREL [Suspect]
     Indication: RHEUMATOID ARTHRITIS
     Dosage: 25 mg, 2x/week
     Route: 058
     Dates: start: 20080302, end: 201110
  2. ENBREL [Suspect]
     Dosage: 50 mg, once weekly
     Route: 058
     Dates: start: 201209, end: 201209
  3. ENDOFOLIN [Concomitant]
     Dosage: 5 mg, UNK
  4. SYNTHROID [Concomitant]
     Indication: THYROID DISORDER
     Dosage: 137 mg, UNK
  5. SIMVASTATIN [Concomitant]
     Indication: BLOOD CHOLESTEROL INCREASED
     Dosage: 20 mg, UNK
  6. LOSARTAN [Concomitant]
     Indication: HYPERTENSION
     Dosage: UNK
  7. MELOXICAM [Concomitant]
     Dosage: 15 mg, UNK
  8. CARISOPRODOL [Concomitant]
     Dosage: 126 mg, UNK
  9. PARACETAMOL [Concomitant]
     Dosage: 400 mg, UNK
  10. FAMOTIDINE [Concomitant]
     Dosage: 20 mg, UNK
  11. RYTMONORM [Concomitant]
     Dosage: 300 mg, UNK
  12. BROMAZEPAM [Concomitant]
     Indication: RELAXATION THERAPY
     Dosage: a half of tablet to sleep
  13. GLIFAGE [Concomitant]
     Dosage: UNK

REACTIONS (4)
  - Lung disorder [Recovered/Resolved]
  - Pain in extremity [Unknown]
  - Oedema peripheral [Unknown]
  - Injection site pain [Unknown]
